FAERS Safety Report 8822245 (Version 2)
Quarter: 2012Q4

REPORT INFORMATION
  Report Type: 
  Country: US (occurrence: US)
  Receive Date: 20121003
  Receipt Date: 20121116
  Transmission Date: 20130627
  Serious: No
  Sender: FDA-Public Use
  Company Number: US-PFIZER INC-2012241423

PATIENT
  Age: 37 Year
  Sex: Female
  Weight: 64.85 kg

DRUGS (3)
  1. ZOLOFT [Suspect]
     Indication: PANIC ATTACKS
     Dosage: 100 mg, daily
     Dates: start: 1996, end: 2005
  2. ZOLOFT [Suspect]
     Indication: ANXIETY
     Dosage: 100 mg, daily
     Dates: start: 2011, end: 2011
  3. ZOLOFT [Suspect]
     Indication: DEPRESSION
     Dosage: 50 mg, daily
     Dates: start: 20120911

REACTIONS (1)
  - Vomiting in pregnancy [Recovered/Resolved]
